FAERS Safety Report 5851442-9 (Version None)
Quarter: 2008Q3

REPORT INFORMATION
  Report Type: 
  Country: None (occurrence: None)
  Receive Date: 20080820
  Receipt Date: 20080815
  Transmission Date: 20090109
  Serious: Yes (Other)
  Sender: FDA-Public Use
  Company Number: US-CELGENEUS-163-20785-08061731

PATIENT
  Sex: Female
  Weight: 69.462 kg

DRUGS (6)
  1. THALOMID [Suspect]
     Indication: MULTIPLE MYELOMA
     Route: 048
     Dates: start: 20070323, end: 20080201
  2. THALOMID [Suspect]
     Route: 048
     Dates: start: 20080222, end: 20080601
  3. DECADRON SRC [Concomitant]
     Indication: MULTIPLE MYELOMA
     Route: 065
  4. ASPIRIN [Concomitant]
     Indication: DRUG USE FOR UNKNOWN INDICATION
     Route: 065
  5. ZOMETA [Concomitant]
     Indication: DRUG USE FOR UNKNOWN INDICATION
     Route: 050
  6. PERCOCET [Concomitant]
     Indication: PAIN
     Route: 065
     Dates: start: 20080301

REACTIONS (3)
  - COMPRESSION FRACTURE [None]
  - INSOMNIA [None]
  - NEUROPATHY PERIPHERAL [None]
